FAERS Safety Report 25681145 (Version 1)
Quarter: 2025Q3

REPORT INFORMATION
  Report Type: Spontaneous
  Country: US (occurrence: US)
  Receive Date: 20250814
  Receipt Date: 20250814
  Transmission Date: 20251021
  Serious: No
  Sender: AVERITAS
  Company Number: US-GRUNENTHAL-2025-112461

PATIENT
  Sex: Female

DRUGS (1)
  1. QUTENZA [Suspect]
     Active Substance: CAPSAICIN
     Indication: Diabetic neuropathy
     Route: 061
     Dates: start: 202410, end: 202502

REACTIONS (5)
  - Product prescribing error [Unknown]
  - Neuropathy peripheral [Unknown]
  - Application site pain [Unknown]
  - Drug monitoring procedure not performed [Unknown]
  - Application site pain [Unknown]
